FAERS Safety Report 10695289 (Version 3)
Quarter: 2015Q2

REPORT INFORMATION
  Report Type: Report from Study
  Country: AU (occurrence: AU)
  Receive Date: 20150107
  Receipt Date: 20150622
  Transmission Date: 20150821
  Serious: Yes (Death, Hospitalization, Other)
  Sender: FDA-Public Use
  Company Number: AU-BAYER-2015-001064

PATIENT
  Age: 37 Year
  Sex: Male

DRUGS (2)
  1. STIVARGA [Suspect]
     Active Substance: REGORAFENIB
     Indication: COLORECTAL CANCER METASTATIC
     Dosage: UNK
     Route: 048
     Dates: start: 201502
  2. STIVARGA [Suspect]
     Active Substance: REGORAFENIB
     Indication: COLORECTAL CANCER METASTATIC
     Dosage: 160 MG DAILY
     Route: 048
     Dates: start: 20140707, end: 201502

REACTIONS (4)
  - Radiotherapy to liver [None]
  - Renal disorder [None]
  - Death [Fatal]
  - Infection [None]

NARRATIVE: CASE EVENT DATE: 20141213
